FAERS Safety Report 8877038 (Version 2)
Quarter: 2012Q4

REPORT INFORMATION
  Report Type: Report from Study
  Country: US (occurrence: US)
  Receive Date: 20121030
  Receipt Date: 20121115
  Transmission Date: 20130627
  Serious: Yes (Death, Other)
  Sender: FDA-Public Use
  Company Number: US-ASTELLAS-2012US010508

PATIENT
  Age: 76 Year
  Sex: Male

DRUGS (10)
  1. ERLOTINIB TABLET [Suspect]
     Indication: LUNG NEOPLASM MALIGNANT
     Dosage: 150 mg, UID/QD
     Route: 048
     Dates: start: 20120223, end: 20120926
  2. MUCINEX [Concomitant]
     Indication: PRODUCT USED FOR UNKNOWN INDICATION
     Dosage: UNK
     Route: 065
  3. PREDNISONE [Concomitant]
     Indication: PRODUCT USED FOR UNKNOWN INDICATION
     Dosage: UNK
     Route: 065
  4. AVELOX [Concomitant]
     Indication: PRODUCT USED FOR UNKNOWN INDICATION
     Dosage: UNK
     Route: 065
  5. PEPTO-BISMOL [Concomitant]
     Indication: PRODUCT USED FOR UNKNOWN INDICATION
     Dosage: UNK
     Route: 065
  6. MORPHINE SULFATE [Concomitant]
     Indication: PRODUCT USED FOR UNKNOWN INDICATION
     Dosage: UNK
     Route: 065
  7. CARDIAC THERAPY [Concomitant]
     Indication: CARDIAC DISORDER
     Dosage: UNK
     Route: 065
  8. ANTIHYPERTENSIVES [Concomitant]
     Indication: BLOOD PRESSURE
     Dosage: UNK
     Route: 065
  9. LASIX                              /00032601/ [Concomitant]
     Indication: PRODUCT USED FOR UNKNOWN INDICATION
     Dosage: 40 mg, UID/QD
     Route: 065
  10. MEGACE [Concomitant]
     Indication: PRODUCT USED FOR UNKNOWN INDICATION
     Dosage: 40 mg, UID/QD
     Route: 065

REACTIONS (2)
  - Dysphagia [Unknown]
  - Lung carcinoma cell type unspecified stage IV [Fatal]
